FAERS Safety Report 22591786 (Version 1)
Quarter: 2023Q2

REPORT INFORMATION
  Report Type: Spontaneous
  Country: US (occurrence: US)
  Receive Date: 20230612
  Receipt Date: 20230612
  Transmission Date: 20230722
  Serious: No
  Sender: FDA-Public Use
  Company Number: US-RIGEL PHARMACEUTICALS, INC.-2023FOS000078

PATIENT
  Age: 64 Year
  Sex: Female
  Weight: 64.898 kg

DRUGS (2)
  1. TAVALISSE [Suspect]
     Active Substance: FOSTAMATINIB
     Indication: Immune thrombocytopenia
     Dosage: 150 MG, BID
     Route: 065
     Dates: start: 202301
  2. TAVALISSE [Suspect]
     Active Substance: FOSTAMATINIB
     Dosage: 100 MG, BID, 1 TABLET BY MOUTH IN THE MORNING AND AT BEDTIME
     Route: 048
     Dates: start: 20230105, end: 202301

REACTIONS (4)
  - Platelet count decreased [Unknown]
  - Contusion [Unknown]
  - Faeces soft [Unknown]
  - Blood pressure increased [Unknown]

NARRATIVE: CASE EVENT DATE: 20230101
